FAERS Safety Report 9617586 (Version 1)
Quarter: 2013Q4

REPORT INFORMATION
  Report Type: Spontaneous
  Country: US (occurrence: US)
  Receive Date: 20131011
  Receipt Date: 20131011
  Transmission Date: 20140711
  Serious: No
  Sender: FDA-Public Use
  Company Number: US-PFIZER INC-2013289752

PATIENT
  Age: 52 Year
  Sex: Female

DRUGS (3)
  1. PREMARIN [Suspect]
     Indication: VULVOVAGINAL DRYNESS
     Dosage: UNK
  2. PREMARIN [Suspect]
     Indication: VULVOVAGINAL PRURITUS
  3. PREMARIN [Suspect]
     Indication: VULVOVAGINAL BURNING SENSATION

REACTIONS (1)
  - Drug ineffective [Unknown]
